FAERS Safety Report 13704214 (Version 1)
Quarter: 2017Q2

REPORT INFORMATION
  Report Type: Spontaneous
  Country: GB (occurrence: GB)
  Receive Date: 20170630
  Receipt Date: 20170630
  Transmission Date: 20170830
  Serious: Yes (Other)
  Sender: FDA-Public Use
  Company Number: GB-TEVA-780646ACC

PATIENT
  Sex: Female

DRUGS (4)
  1. METFORMIN [Suspect]
     Active Substance: METFORMIN HYDROCHLORIDE
     Indication: TYPE 2 DIABETES MELLITUS
     Dosage: INITIALLY 500 MG, AFTER TWO WEEKS INCREASED TO 1000 MG
     Route: 048
     Dates: start: 201610
  2. FUROSEMIDE. [Concomitant]
     Active Substance: FUROSEMIDE
  3. DOXAZOSIN [Concomitant]
     Active Substance: DOXAZOSIN\DOXAZOSIN MESYLATE
  4. LOVASTATIN. [Concomitant]
     Active Substance: LOVASTATIN

REACTIONS (4)
  - Dyspnoea [Unknown]
  - Renal disorder [Unknown]
  - Abdominal pain [Unknown]
  - Haematuria [Unknown]

NARRATIVE: CASE EVENT DATE: 201704
